FAERS Safety Report 6727067-X (Version None)
Quarter: 2010Q2

REPORT INFORMATION
  Report Type: 
  Country: None (occurrence: None)
  Receive Date: 20100517
  Receipt Date: 20100426
  Transmission Date: 20101027
  Serious: Yes (Hospitalization, Other)
  Sender: FDA-Public Use
  Company Number: US-BAYER-201013715NA

PATIENT
  Age: 30 Year
  Sex: Female
  Weight: 59 kg

DRUGS (17)
  1. YASMIN [Suspect]
     Indication: ORAL CONTRACEPTION
     Route: 048
     Dates: start: 20050501, end: 20090501
  2. OCELLA [Suspect]
     Indication: ORAL CONTRACEPTION
     Route: 048
     Dates: start: 20050501, end: 20090501
  3. ZITHROMAX [Concomitant]
     Dosage: 01/02/08
     Route: 065
  4. ALBUTEROL [Concomitant]
     Route: 065
  5. ALLEGRA [Concomitant]
     Route: 065
     Dates: start: 20050101
  6. OXYCODONE HCL AND ACETAMINOPHEN [Concomitant]
     Dosage: 16-FEB-2008
     Route: 065
  7. PROCHLORPERAZINE [Concomitant]
     Dosage: 16-FEB-2008
     Route: 065
  8. MECLIZIN [Concomitant]
     Dosage: ??-OCT-2007
     Route: 065
  9. FEXOFENADINE [Concomitant]
     Route: 065
     Dates: start: 20070913, end: 20080806
  10. NAZONEX [Concomitant]
     Route: 065
     Dates: start: 20070901, end: 20080801
  11. ACETAMINOPHEN [Concomitant]
     Dosage: 19-DEC-2008
     Route: 065
  12. PHENAZOPYRIDINE HCL TAB [Concomitant]
     Dosage: 19-DEC-2008
     Route: 065
  13. ADVARE DISCUS [Concomitant]
     Dosage: 04-NOV-2008
     Route: 065
  14. PREDNIZONE [Concomitant]
     Dosage: 11-APR-2010
     Route: 065
  15. CLOTRIMAZOLE [Concomitant]
  16. ONDASTERON [Concomitant]
  17. LEVAQUIN [Concomitant]
     Indication: UPPER RESPIRATORY TRACT INFECTION

REACTIONS (4)
  - ABDOMINAL PAIN UPPER [None]
  - CHOLELITHIASIS [None]
  - DIARRHOEA [None]
  - NEPHROLITHIASIS [None]
